FAERS Safety Report 9209406 (Version 1)
Quarter: 2013Q1

REPORT INFORMATION
  Report Type: Spontaneous
  Country: US (occurrence: US)
  Receive Date: 20120820
  Receipt Date: 20120820
  Transmission Date: 20140127
  Serious: No
  Sender: FDA-Public Use
  Company Number: 1000036894

PATIENT
  Age: 55 Year
  Sex: Female

DRUGS (7)
  1. VIIBRYD (VILAZODONE) (10 MILLIGRAM, TABLETS) [Suspect]
     Indication: DEPRESSION
     Route: 048
     Dates: start: 201205, end: 2012
  2. VIIBRYD (VILAZODONE) (10 MILLIGRAM, TABLETS) [Suspect]
     Indication: ANXIETY
     Route: 048
     Dates: start: 201205, end: 2012
  3. VIIBRYD (VILAZODONE) (40 MILLIGRAM, TABLETS) [Suspect]
     Indication: DEPRESSION
     Route: 048
     Dates: start: 2012, end: 20120701
  4. VIIBRYD (VILAZODONE) (40 MILLIGRAM, TABLETS) [Suspect]
     Indication: ANXIETY
     Route: 048
     Dates: start: 2012, end: 20120701
  5. VIIBRYD (VILAZODONE) [Suspect]
     Indication: DEPRESSION
     Route: 048
     Dates: start: 20120702, end: 20120709
  6. VIIBRYD (VILAZODONE) [Suspect]
     Indication: ANXIETY
     Route: 048
     Dates: start: 20120702, end: 20120709
  7. XANAX (ALPRAZOLAM)(ALPRAZOLAM) [Concomitant]

REACTIONS (1)
  - Insomnia [None]
